FAERS Safety Report 8575551-9 (Version None)
Quarter: 2012Q3

REPORT INFORMATION
  Report Type: 
  Country: None (occurrence: None)
  Receive Date: 20120807
  Receipt Date: 20120731
  Transmission Date: 20120928
  Serious: Yes (Hospitalization, Other)
  Sender: FDA-Public Use
  Company Number: FR-ELI_LILLY_AND_COMPANY-FR201207009240

PATIENT
  Age: 75 Year
  Sex: Female

DRUGS (10)
  1. OMEPRAZOLE [Concomitant]
  2. ACTONEL [Concomitant]
  3. PREDNISONE TAB [Concomitant]
  4. VITAMINE B12 AGUETTANT [Concomitant]
  5. TRAMADOL HCL [Concomitant]
     Dosage: 100 MG, UNK
  6. FUROSEMIDE [Concomitant]
  7. CALCIUM CARBONATE [Concomitant]
  8. FORTEO [Suspect]
     Indication: OSTEOPOROSIS
     Dosage: UNK
     Route: 058
     Dates: start: 20120601, end: 20120620
  9. POTASSIUM CHLORIDE [Concomitant]
  10. ASPIRIN [Concomitant]
     Dosage: 75 MG, UNK

REACTIONS (8)
  - PRESYNCOPE [None]
  - MALAISE [None]
  - TACHYCARDIA [None]
  - PULMONARY EMBOLISM [None]
  - ERYTHEMA [None]
  - CHEST PAIN [None]
  - VENOUS THROMBOSIS LIMB [None]
  - VERTIGO [None]
